FAERS Safety Report 5492547-4 (Version None)
Quarter: 2007Q4

REPORT INFORMATION
  Report Type: 
  Country: None (occurrence: None)
  Receive Date: 20071022
  Receipt Date: 20071012
  Transmission Date: 20080405
  Serious: Yes (Other)
  Sender: FDA-Public Use
  Company Number: CH-ABBOTT-07P-151-0419021-00

PATIENT
  Sex: Female

DRUGS (1)
  1. HUMIRA [Suspect]
     Indication: CROHN'S DISEASE
     Route: 058
     Dates: start: 20070523, end: 20070814

REACTIONS (6)
  - APHTHOUS STOMATITIS [None]
  - CHILLS [None]
  - CONVULSION [None]
  - CYANOSIS [None]
  - FACE OEDEMA [None]
  - PYREXIA [None]
